FAERS Safety Report 17362256 (Version 2)
Quarter: 2021Q3

REPORT INFORMATION
  Report Type: Spontaneous
  Country: CH (occurrence: CH)
  Receive Date: 20200203
  Receipt Date: 20210804
  Transmission Date: 20211014
  Serious: Yes (Hospitalization)
  Sender: FDA-Public Use
  Company Number: CH-ASTRAZENECA-2020SE14145

PATIENT
  Age: 758 Month
  Sex: Female

DRUGS (13)
  1. NOVORAPID [Suspect]
     Active Substance: INSULIN ASPART
     Route: 065
     Dates: start: 20200107, end: 202001
  2. DEXERYL [Concomitant]
  3. CO?AMOXI [Concomitant]
     Active Substance: AMOXICILLIN\CLAVULANATE POTASSIUM
  4. FORXIGA [Suspect]
     Active Substance: DAPAGLIFLOZIN
     Route: 048
     Dates: start: 20190705, end: 201910
  5. FORXIGA [Suspect]
     Active Substance: DAPAGLIFLOZIN
     Route: 048
     Dates: start: 201910, end: 201912
  6. FORXIGA [Suspect]
     Active Substance: DAPAGLIFLOZIN
     Route: 048
     Dates: start: 201912, end: 20200103
  7. CLEXANE [Concomitant]
     Active Substance: ENOXAPARIN SODIUM
  8. BETNOVATE [Concomitant]
     Active Substance: BETAMETHASONE
  9. DERMOVATE [Concomitant]
     Active Substance: CLOBETASOL
  10. DAFALGAN [Concomitant]
     Active Substance: ACETAMINOPHEN
     Dosage: UNKNOWN DOSE AS NECESSARY
  11. GLUCOPHAGE [Concomitant]
     Active Substance: METFORMIN HYDROCHLORIDE
  12. DIAMICRON [Concomitant]
     Active Substance: GLICLAZIDE
  13. FEXOFENADINE [Concomitant]
     Active Substance: FEXOFENADINE HYDROCHLORIDE

REACTIONS (3)
  - Dermo-hypodermitis [Recovered/Resolved]
  - Rebound effect [Recovered/Resolved]
  - Drug eruption [Recovered/Resolved]

NARRATIVE: CASE EVENT DATE: 201910
